FAERS Safety Report 9091447 (Version 1)
Quarter: 2013Q1

REPORT INFORMATION
  Report Type: Spontaneous
  Country: US (occurrence: US)
  Receive Date: 20130201
  Receipt Date: 20130201
  Transmission Date: 20140127
  Serious: Yes (Other)
  Sender: FDA-Public Use
  Company Number: US-PFIZER INC-2013041656

PATIENT
  Age: 67 Year
  Sex: Female
  Weight: 80.73 kg

DRUGS (6)
  1. LYRICA [Suspect]
     Indication: RHEUMATOID ARTHRITIS
     Dosage: 50 MG, 2X/DAY
     Dates: start: 201204, end: 201209
  2. LYRICA [Suspect]
     Indication: FIBROMYALGIA
  3. CELEBREX [Suspect]
     Indication: FIBROMYALGIA
     Dosage: 200 MG, DAILY
     Dates: start: 201204, end: 201209
  4. CELEBREX [Suspect]
     Indication: RHEUMATOID ARTHRITIS
  5. CELEBREX [Suspect]
     Indication: PAIN
  6. ARAVA [Suspect]
     Indication: RHEUMATOID ARTHRITIS
     Dosage: 10 MG, DAILY
     Dates: start: 201204, end: 201209

REACTIONS (3)
  - Fall [Unknown]
  - Dizziness [Unknown]
  - Alopecia [Unknown]
